FAERS Safety Report 9300286 (Version 1)
Quarter: 2013Q1

REPORT INFORMATION
  Report Type: Spontaneous
  Country: US (occurrence: None)
  Receive Date: 20130107
  Receipt Date: 20130107
  Transmission Date: 20140127
  Serious: Yes (Other)
  Sender: FDA-Public Use
  Company Number: PHEH2012US017237

PATIENT
  Age: 44 Year
  Sex: Female
  Weight: 72.6 kg

DRUGS (6)
  1. GILENYA (FTY) CAPSULE, 0.5MG [Suspect]
     Indication: MULTIPLE SCLEROSIS
     Route: 048
     Dates: start: 20120829
  2. GACLOTIN [Concomitant]
  3. AMBIEN (ZOLPIDEM TARTRATE) [Concomitant]
  4. DETROL (TOLTERODINE L-TARTRATE) [Concomitant]
  5. NEURONTIN (GABAPENTIN) [Concomitant]
  6. ESTRATEST (ESTROGENS ESTERIFIED, METHYLTESTOSTERONE) [Concomitant]

REACTIONS (1)
  - Bradycardia [None]
